FAERS Safety Report 9249841 (Version 4)
Quarter: 2014Q2

REPORT INFORMATION
  Report Type: Spontaneous
  Country: MX (occurrence: MX)
  Receive Date: 20130423
  Receipt Date: 20140528
  Transmission Date: 20141212
  Serious: Yes (Other)
  Sender: FDA-Public Use
  Company Number: PHHY2013MX038742

PATIENT
  Age: 34 Year
  Sex: Female
  Weight: 62 kg

DRUGS (3)
  1. ACLASTA [Suspect]
     Indication: OSTEOPOROSIS
     Dosage: 5MG/100ML
     Route: 042
     Dates: start: 2012
  2. CALCIUM CITRATE [Concomitant]
     Indication: OSTEOPOROSIS
     Dosage: 375 MG, BID
     Route: 048
     Dates: start: 2012
  3. VITAMIN D [Concomitant]
     Indication: OSTEOPOROSIS
     Dosage: 800 IU, DAILY
     Route: 048
     Dates: start: 2012

REACTIONS (5)
  - High risk pregnancy [Unknown]
  - Pregnancy on contraceptive [Unknown]
  - Weight increased [Unknown]
  - Back pain [Unknown]
  - Maternal exposure during pregnancy [Unknown]
